FAERS Safety Report 22109540 (Version 1)
Quarter: 2023Q1

REPORT INFORMATION
  Report Type: Spontaneous
  Country: CN (occurrence: None)
  Receive Date: 20230317
  Receipt Date: 20230317
  Transmission Date: 20230418
  Serious: Yes (Death)
  Sender: FDA-Public Use
  Company Number: 2023A062053

PATIENT
  Age: 85 Year
  Sex: Female
  Weight: 47 kg

DRUGS (2)
  1. IMFINZI [Suspect]
     Active Substance: DURVALUMAB
     Indication: Lung squamous cell carcinoma stage III
     Dosage: 500 MG/CYCLE
     Route: 042
     Dates: start: 20210104, end: 20210108
  2. IMFINZI [Suspect]
     Active Substance: DURVALUMAB
     Indication: Lung squamous cell carcinoma stage III
     Dosage: 500 MG
     Route: 042

REACTIONS (1)
  - Death [Fatal]
